FAERS Safety Report 9103619 (Version 1)
Quarter: 2013Q1

REPORT INFORMATION
  Report Type: Spontaneous
  Country: AR (occurrence: AR)
  Receive Date: 20130218
  Receipt Date: 20130218
  Transmission Date: 20140127
  Serious: Yes (Death)
  Sender: FDA-Public Use
  Company Number: PHHY2012AR127454

PATIENT
  Age: 75 Year
  Sex: Male

DRUGS (2)
  1. RASILEZ D [Suspect]
     Dosage: 1 DF, (300 MG ALISK AND 12.5 MG HCTZ), UNK
     Route: 048
  2. GALVUS MET [Suspect]
     Dosage: 1 DF, (850 MG MET AND 50 MG VILDA), UNK
     Route: 048

REACTIONS (1)
  - Hepatic cancer [Fatal]
